FAERS Safety Report 4449198-X (Version None)
Quarter: 2004Q3

REPORT INFORMATION
  Report Type: 
  Country: None (occurrence: None)
  Receive Date: 20040910
  Receipt Date: 20040831
  Transmission Date: 20050211
  Serious: Yes (Other)
  Sender: FDA-Public Use
  Company Number: 2004052112

PATIENT
  Sex: Female
  Weight: 52 kg

DRUGS (1)
  1. ATORVASTATIN CALCIUM [Suspect]
     Indication: HYPERCHOLESTEROLAEMIA
     Dosage: ORAL
     Route: 048
     Dates: end: 20040728

REACTIONS (7)
  - ARTHROPATHY [None]
  - BLOOD CHOLESTEROL INCREASED [None]
  - HIGH DENSITY LIPOPROTEIN DECREASED [None]
  - MUSCLE CRAMP [None]
  - PAIN IN EXTREMITY [None]
  - TENDON DISORDER [None]
  - TENDONITIS [None]
